FAERS Safety Report 6275041-2 (Version None)
Quarter: 2009Q3

REPORT INFORMATION
  Report Type: 
  Country: None (occurrence: None)
  Receive Date: 20090717
  Receipt Date: 20090706
  Transmission Date: 20100115
  Serious: Yes (Hospitalization, Other)
  Sender: FDA-Public Use
  Company Number: PAR_03082_2009

PATIENT
  Age: 25 Year
  Sex: Male

DRUGS (2)
  1. IBUPROFEN [Suspect]
     Indication: HEADACHE
     Dosage: (DF)
  2. IBUPROFEN [Suspect]
     Indication: MYALGIA
     Dosage: (DF)

REACTIONS (1)
  - EOSINOPHILIC PNEUMONIA [None]
